FAERS Safety Report 7415059-7 (Version None)
Quarter: 2011Q2

REPORT INFORMATION
  Report Type: 
  Country: None (occurrence: None)
  Receive Date: 20110414
  Receipt Date: 20110401
  Transmission Date: 20111010
  Serious: Yes (Other)
  Sender: FDA-Public Use
  Company Number: FR-ROCHE-769542

PATIENT
  Sex: Female

DRUGS (3)
  1. CAPECITABINE [Suspect]
     Dosage: LAST DOSE PRIOR TO SAE: 20 MARCH 2011.
     Route: 065
     Dates: start: 20101208, end: 20110328
  2. PACLITAXEL [Suspect]
     Dosage: LAST DOSE PRIOR TO SAE: 16 MARCH 2011
     Route: 065
     Dates: start: 20101208, end: 20110328
  3. BEVACIZUMAB [Suspect]
     Dosage: LAST DOSE PRIOR TO SAE: 16 MARCH 2011
     Route: 065
     Dates: start: 20101208, end: 20110328

REACTIONS (1)
  - NAIL INFECTION [None]
